FAERS Safety Report 9331967 (Version 2)
Quarter: 2013Q3

REPORT INFORMATION
  Report Type: Spontaneous
  Country: DE (occurrence: DE)
  Receive Date: 20130605
  Receipt Date: 20130814
  Transmission Date: 20140515
  Serious: Yes (Other)
  Sender: FDA-Public Use
  Company Number: PHHY2013DE040001

PATIENT
  Sex: Male

DRUGS (2)
  1. OTRIVEN [Suspect]
     Dosage: UNK, UNK
     Route: 045
  2. PRIVINE [Suspect]
     Dosage: UNK, UNK
     Route: 045

REACTIONS (3)
  - Nasal septum disorder [Unknown]
  - Nasal mucosal disorder [Unknown]
  - Nasal congestion [Unknown]
